FAERS Safety Report 11891191 (Version 1)
Quarter: 2016Q1

REPORT INFORMATION
  Report Type: Spontaneous
  Country: US (occurrence: None)
  Receive Date: 20160105
  Receipt Date: 20160105
  Transmission Date: 20160526
  Serious: No
  Sender: FDA-Public Use
  Company Number: None

PATIENT
  Age: 91 Year
  Sex: Female

DRUGS (1)
  1. POMALYST [Suspect]
     Active Substance: POMALIDOMIDE
     Route: 048

REACTIONS (10)
  - White blood cell count decreased [None]
  - Platelet count decreased [None]
  - Transcription medication error [None]
  - Neutrophil count decreased [None]
  - Inappropriate schedule of drug administration [None]
  - Haematocrit decreased [None]
  - Haemoglobin decreased [None]
  - Incorrect dose administered [None]
  - Dysstasia [None]
  - Asthenia [None]
